FAERS Safety Report 8859349 (Version 1)
Quarter: 2012Q4

REPORT INFORMATION
  Report Type: 
  Country: US (occurrence: US)
  Receive Date: 20121024
  Receipt Date: 20121024
  Transmission Date: 20130627
  Serious: No
  Sender: FDA-Public Use
  Company Number: US-ASTRAZENECA-2012SE16158

PATIENT
  Age: 48 Year
  Sex: Male

DRUGS (4)
  1. TOPROL XL [Suspect]
     Route: 048
  2. ATACAND HCT [Concomitant]
  3. VERAPAMIL [Concomitant]
  4. CLONIDINE [Concomitant]

REACTIONS (3)
  - Hypertension [Unknown]
  - Adverse event [Unknown]
  - Drug ineffective [Unknown]
